FAERS Safety Report 10204310 (Version 2)
Quarter: 2014Q2

REPORT INFORMATION
  Report Type: Spontaneous
  Country: AR (occurrence: AR)
  Receive Date: 20140529
  Receipt Date: 20140611
  Transmission Date: 20141212
  Serious: Yes (Other)
  Sender: FDA-Public Use
  Company Number: AR-BAXTER-2014BAX026979

PATIENT
  Sex: Female
  Weight: 62.8 kg

DRUGS (6)
  1. DIANEAL PD2 / SOLUCI?N PARA DI?LISIS PERITONEAL, DEXTROSA, CLORURO DE [Suspect]
     Indication: PERITONEAL DIALYSIS
     Route: 033
     Dates: start: 201309
  2. DIANEAL PD2 / SOLUCI?N PARA DI?LISIS PERITONEAL, DEXTROSA, CLORURO DE [Suspect]
     Indication: PERITONEAL DIALYSIS
     Route: 033
     Dates: start: 20130710, end: 201309
  3. CLOPIDOGREL [Suspect]
     Indication: PLATELET AGGREGATION
  4. ASPIRINE [Suspect]
     Indication: PLATELET AGGREGATION
  5. LEVOTHYROXINE [Concomitant]
     Indication: HYPOTHYROIDISM
  6. NIFEDIPINE [Concomitant]
     Indication: HYPERTENSION

REACTIONS (3)
  - Peritoneal haemorrhage [Recovered/Resolved]
  - Peritoneal effluent abnormal [Recovered/Resolved]
  - Drug intolerance [Unknown]
